FAERS Safety Report 9400316 (Version 1)
Quarter: 2013Q3

REPORT INFORMATION
  Report Type: Spontaneous
  Country: US (occurrence: US)
  Receive Date: 20130715
  Receipt Date: 20130715
  Transmission Date: 20140515
  Serious: No
  Sender: FDA-Public Use
  Company Number: US-BAUSCH-BL-2013-003384

PATIENT
  Sex: Female

DRUGS (1)
  1. LATANOPROST OPHTHALMIC SOLUTION 0.005% [Suspect]
     Indication: PRODUCT USED FOR UNKNOWN INDICATION
     Dosage: ONE DROP INTO EACH EYE AT BEDTIME
     Route: 047

REACTIONS (7)
  - Swelling face [Unknown]
  - Eyelid oedema [Unknown]
  - Nasal oedema [Unknown]
  - Ear swelling [Unknown]
  - Erythema [Unknown]
  - Pruritus generalised [Unknown]
  - Oedema mouth [Unknown]
